FAERS Safety Report 22309204 (Version 2)
Quarter: 2023Q2

REPORT INFORMATION
  Report Type: Spontaneous
  Country: US (occurrence: US)
  Receive Date: 20230511
  Receipt Date: 20230620
  Transmission Date: 20230722
  Serious: Yes (Other)
  Sender: FDA-Public Use
  Company Number: US-SA-SAC20230510001251

PATIENT
  Sex: Male

DRUGS (4)
  1. ELOCTATE [Suspect]
     Active Substance: EFMOROCTOCOG ALFA
     Indication: Factor VIII deficiency
     Dosage: TWICE WEEKLY ON MONDAY/THURSDAY, TUESDAY/FRIDAY OR A WEDNESDAY/SATURDAY SCHEDULE AND AS NEEDED EVERY
     Route: 042
     Dates: start: 202012
  2. ELOCTATE [Suspect]
     Active Substance: EFMOROCTOCOG ALFA
     Indication: Factor VIII deficiency
     Dosage: TWICE WEEKLY ON MONDAY/THURSDAY, TUESDAY/FRIDAY OR A WEDNESDAY/SATURDAY SCHEDULE AND AS NEEDED EVERY
     Route: 042
     Dates: start: 202012
  3. ELOCTATE [Suspect]
     Active Substance: EFMOROCTOCOG ALFA
     Dosage: 10000 U; TWICE WEEKLY
     Route: 042
     Dates: start: 20230517
  4. ELOCTATE [Suspect]
     Active Substance: EFMOROCTOCOG ALFA
     Dosage: 10000 U; TWICE WEEKLY
     Route: 042
     Dates: start: 20230517

REACTIONS (2)
  - Haemarthrosis [Unknown]
  - Haemorrhage [Not Recovered/Not Resolved]
